FAERS Safety Report 7949235-1 (Version None)
Quarter: 2011Q4

REPORT INFORMATION
  Report Type: 
  Country: None (occurrence: None)
  Receive Date: 20111129
  Receipt Date: 20111129
  Transmission Date: 20120403
  Serious: Yes (Hospitalization)
  Sender: FDA-Public Use
  Company Number: None

PATIENT
  Sex: Female
  Weight: 71.8 kg

DRUGS (2)
  1. IDARUBICIN HCL [Suspect]
     Dosage: 28 MG
     Dates: end: 20111113
  2. CYTARABINE [Suspect]
     Dosage: 900 MG
     Dates: end: 20111117

REACTIONS (2)
  - HYPOXIA [None]
  - HYPOPHOSPHATAEMIA [None]
